FAERS Safety Report 23378171 (Version 2)
Quarter: 2024Q1

REPORT INFORMATION
  Report Type: Report from Study
  Country: KR (occurrence: KR)
  Receive Date: 20240108
  Receipt Date: 20240109
  Transmission Date: 20240410
  Serious: Yes (Hospitalization)
  Sender: FDA-Public Use
  Company Number: KR-ABBVIE-5572292

PATIENT
  Age: 65 Year
  Sex: Male
  Weight: 68 kg

DRUGS (5)
  1. UPADACITINIB [Suspect]
     Active Substance: UPADACITINIB
     Indication: Rheumatoid arthritis
     Dosage: 15 MILLIGRAM
     Route: 048
     Dates: start: 20230531
  2. BAMIDE [Concomitant]
     Indication: Prophylaxis against gastrointestinal ulcer
     Dosage: TAB 100MG?FORM STRENGTH: 100 MILLIGRAM
     Dates: start: 20230516
  3. Hanmi aspirin [Concomitant]
     Indication: Cardiovascular disorder
     Dosage: 100 MG?FORM STRENGTH: 100 MILLIGRAM
     Dates: start: 20230927
  4. METHYLPREDNISOLONE [Concomitant]
     Active Substance: METHYLPREDNISOLONE
     Indication: Rheumatoid arthritis
     Dosage: 2MG?FORM STRENGTH: 4 MILLIGRAM
     Dates: start: 20230516
  5. CELEBREX [Concomitant]
     Active Substance: CELECOXIB
     Indication: Rheumatoid arthritis
     Dosage: 200MG?FORM STRENGTH: 200 MILLIGRAM
     Dates: start: 20230516

REACTIONS (1)
  - Back pain [Recovered/Resolved]

NARRATIVE: CASE EVENT DATE: 20230801
